FAERS Safety Report 15194737 (Version 1)
Quarter: 2018Q3

REPORT INFORMATION
  Report Type: Spontaneous
  Country: US (occurrence: US)
  Receive Date: 20180626
  Receipt Date: 20180626
  Transmission Date: 20181010
  Serious: Yes (Other)
  Sender: FDA-Public Use
  Company Number: None

PATIENT
  Age: 69 Year
  Sex: Male
  Weight: 76.2 kg

DRUGS (6)
  1. MAGNESIUM [Concomitant]
     Active Substance: MAGNESIUM
  2. LORATADINE. [Concomitant]
     Active Substance: LORATADINE
  3. COMBIVENT RESPIMAT [Suspect]
     Active Substance: ALBUTEROL SULFATE\IPRATROPIUM BROMIDE
     Indication: CHRONIC OBSTRUCTIVE PULMONARY DISEASE
     Dosage: ?          QUANTITY:1 DF DOSAGE FORM;?
     Route: 048
     Dates: start: 20180330, end: 20180612
  4. SUPER BETA PROSTATE [Concomitant]
     Active Substance: DIETARY SUPPLEMENT
  5. SR. JOSEPH^S LOW DOSE ASPIRIN [Concomitant]
  6. VITAMIN C CALCIUM [Concomitant]

REACTIONS (3)
  - Palpitations [None]
  - Hypersensitivity [None]
  - Bronchospasm paradoxical [None]

NARRATIVE: CASE EVENT DATE: 201806
